FAERS Safety Report 9274520 (Version 4)
Quarter: 2014Q4

REPORT INFORMATION
  Report Type: Report from Study
  Country: US (occurrence: US)
  Receive Date: 20130507
  Receipt Date: 20141128
  Transmission Date: 20150529
  Serious: Yes (Hospitalization)
  Sender: FDA-Public Use
  Company Number: US-ROCHE-1220501

PATIENT
  Age: 76 Year
  Sex: Male
  Weight: 88.1 kg

DRUGS (5)
  1. TRASTUZUMAB [Suspect]
     Active Substance: TRASTUZUMAB
     Dosage: OVER 30 TO 60 MIN ON DAYS 8, 15, 22, 29 AND 36
     Route: 042
     Dates: start: 20130311
  2. CARBOPLATIN. [Suspect]
     Active Substance: CARBOPLATIN
     Indication: OESOPHAGEAL ADENOCARCINOMA
     Dosage: AUC=2, OVER 1 HR ON DAYS 1, 8, 15, 22, 29 AND 36
     Route: 042
     Dates: start: 20130311
  3. PACLITAXEL. [Suspect]
     Active Substance: PACLITAXEL
     Indication: OESOPHAGEAL ADENOCARCINOMA
     Dosage: OVER 1 HR ON DAYS 1, 8, 15, 22, 29 AND 36
     Route: 042
     Dates: start: 20130311
  4. TRASTUZUMAB [Suspect]
     Active Substance: TRASTUZUMAB
     Dosage: OVER 30 TO 90 MIN ON DAY 57
     Route: 042
     Dates: start: 20130311
  5. TRASTUZUMAB [Suspect]
     Active Substance: TRASTUZUMAB
     Indication: OESOPHAGEAL ADENOCARCINOMA
     Dosage: OVER 90 MIN ON DAY 1
     Route: 042
     Dates: start: 20130311

REACTIONS (4)
  - Sepsis [Recovered/Resolved]
  - Infusion related reaction [Recovered/Resolved]
  - Delirium [Recovered/Resolved]
  - Oesophagitis [Recovered/Resolved]

NARRATIVE: CASE EVENT DATE: 20130402
